FAERS Safety Report 6597705-3 (Version None)
Quarter: 2010Q1

REPORT INFORMATION
  Report Type: 
  Country: None (occurrence: None)
  Receive Date: 20100223
  Receipt Date: 20100215
  Transmission Date: 20100710
  Serious: Yes (Hospitalization)
  Sender: FDA-Public Use
  Company Number: JP-ABBOTT-10P-087-0626260-00

PATIENT
  Sex: Female

DRUGS (9)
  1. HUMIRA [Suspect]
     Indication: RHEUMATOID ARTHRITIS
     Route: 058
     Dates: start: 20090416, end: 20090529
  2. HUMIRA [Suspect]
     Dates: start: 20090702, end: 20090820
  3. TACROLIMUS HYDRATE [Concomitant]
     Indication: RHEUMATOID ARTHRITIS
  4. PREDNISOLONE [Concomitant]
     Indication: RHEUMATOID ARTHRITIS
     Route: 048
  5. SODIUM HYALURONATE [Concomitant]
     Indication: RHEUMATOID ARTHRITIS
     Route: 014
  6. MELOXICAM [Concomitant]
     Indication: RHEUMATOID ARTHRITIS
  7. RABEPRAZOLE SODIUM [Concomitant]
     Indication: DRUG USE FOR UNKNOWN INDICATION
  8. ROXITHROMYCIN [Concomitant]
     Indication: INFECTION PROPHYLAXIS
  9. KETOPROFEN [Concomitant]
     Indication: RHEUMATOID ARTHRITIS

REACTIONS (1)
  - CEREBRAL INFARCTION [None]
